FAERS Safety Report 5205479-3 (Version None)
Quarter: 2006Q4

REPORT INFORMATION
  Report Type: 
  Country: None (occurrence: None)
  Receive Date: 20061027
  Receipt Date: 20060213
  Transmission Date: 20070319
  Serious: Yes (Other)
  Sender: FDA-Public Use
  Company Number: HQWYE889117FEB06

PATIENT
  Age: 59 Year
  Sex: Female
  Weight: 88.53 kg

DRUGS (5)
  1. PREMARIN [Suspect]
     Indication: MENOPAUSE
     Dosage: 0.625MG DAILY, ORAL; 0.9 MD, DAILY
     Route: 048
     Dates: start: 19890101, end: 20051108
  2. PREMARIN [Suspect]
     Indication: MENOPAUSE
     Dosage: 0.625MG DAILY, ORAL; 0.9 MD, DAILY
     Route: 048
     Dates: start: 20051109, end: 20060211
  3. PREMARIN [Suspect]
     Indication: MENOPAUSE
     Dosage: 0.625MG DAILY, ORAL; 0.9 MD, DAILY
     Route: 048
     Dates: start: 20060212
  4. PROVERA [Concomitant]
  5. NITROGLYCERIN TRANSDERMAL SYSTEM (GLYCERYL TRINITRATE) [Concomitant]

REACTIONS (1)
  - DYSPEPSIA [None]
